FAERS Safety Report 24767519 (Version 1)
Quarter: 2024Q4

REPORT INFORMATION
  Report Type: Spontaneous
  Country: US (occurrence: None)
  Receive Date: 20241221
  Receipt Date: 20241221
  Transmission Date: 20250115
  Serious: Yes (Disabling, Other)
  Sender: Public
  Company Number: None

PATIENT
  Age: 62 Year
  Sex: Female
  Weight: 113.4 kg

DRUGS (11)
  1. REPATHA [Suspect]
     Active Substance: EVOLOCUMAB
     Indication: Blood cholesterol increased
     Dosage: OTHER QUANTITY : 1 INJECTION(S)?OTHER FREQUENCY : EVERY 14 DAYS?
     Route: 058
     Dates: start: 20240902
  2. LOSARTAN [Concomitant]
     Active Substance: LOSARTAN
  3. ROSUVASTATIN [Concomitant]
     Active Substance: ROSUVASTATIN
  4. ELIQUIS [Concomitant]
     Active Substance: APIXABAN
  5. PAXIL [Concomitant]
     Active Substance: PAROXETINE HYDROCHLORIDE
  6. METOPROLOL SUCCINATE [Concomitant]
     Active Substance: METOPROLOL SUCCINATE
  7. LANTUS [Concomitant]
     Active Substance: INSULIN GLARGINE
  8. NOVOLOG [Concomitant]
     Active Substance: INSULIN ASPART
  9. DexcomG7 [Concomitant]
  10. DEVICE [Concomitant]
     Active Substance: DEVICE
  11. BENADRYL [Concomitant]
     Active Substance: DIPHENHYDRAMINE HYDROCHLORIDE

REACTIONS (9)
  - Rhinorrhoea [None]
  - Otorrhoea [None]
  - Nasopharyngitis [None]
  - Influenza like illness [None]
  - Sinusitis [None]
  - Dizziness [None]
  - Eyelid infection [None]
  - Blood glucose increased [None]
  - Weight increased [None]

NARRATIVE: CASE EVENT DATE: 20240930
